FAERS Safety Report 15399307 (Version 1)
Quarter: 2018Q3

REPORT INFORMATION
  Report Type: Spontaneous
  Country: IT (occurrence: IT)
  Receive Date: 20180918
  Receipt Date: 20180918
  Transmission Date: 20181010
  Serious: Yes (Hospitalization)
  Sender: FDA-Public Use
  Company Number: IT-SA-2018SA078321

PATIENT
  Age: 6 Year
  Sex: Male

DRUGS (4)
  1. CEFOTAXIME SODIUM [Suspect]
     Active Substance: CEFOTAXIME SODIUM
     Indication: PNEUMONITIS
     Dosage: 100 MG/KG/DIE
     Route: 042
  2. AMOXICILLIN/CLAVULANIC ACID [Concomitant]
     Active Substance: AMOXICILLIN\CLAVULANIC ACID
     Indication: CHEST PAIN
     Dosage: UNK UNK,UNK
     Route: 065
  3. AMOXICILLIN/CLAVULANIC ACID [Concomitant]
     Active Substance: AMOXICILLIN\CLAVULANIC ACID
     Indication: COUGH
  4. AMOXICILLIN/CLAVULANIC ACID [Concomitant]
     Active Substance: AMOXICILLIN\CLAVULANIC ACID
     Indication: PYREXIA

REACTIONS (2)
  - Bullous impetigo [Recovered/Resolved]
  - Pruritus [Recovered/Resolved]
